FAERS Safety Report 12435461 (Version 1)
Quarter: 2016Q2

REPORT INFORMATION
  Report Type: Spontaneous
  Country: US (occurrence: US)
  Receive Date: 20160603
  Receipt Date: 20160603
  Transmission Date: 20160815
  Serious: No
  Sender: FDA-Public Use
  Company Number: US-ROCHE-1428250

PATIENT
  Sex: Female

DRUGS (16)
  1. OXYCODONE [Concomitant]
     Active Substance: OXYCODONE
     Route: 065
  2. ROBAXIN [Concomitant]
     Active Substance: METHOCARBAMOL
     Route: 065
  3. COLACE [Concomitant]
     Active Substance: DOCUSATE SODIUM
     Route: 065
  4. CLARITIN [Concomitant]
     Active Substance: LORATADINE
  5. REMERON [Concomitant]
     Active Substance: MIRTAZAPINE
  6. XELODA [Suspect]
     Active Substance: CAPECITABINE
     Route: 048
     Dates: start: 20140613
  7. PROTONIX [Concomitant]
     Active Substance: PANTOPRAZOLE SODIUM
     Route: 065
  8. XARELTO [Concomitant]
     Active Substance: RIVAROXABAN
     Route: 065
  9. ZANTAC [Concomitant]
     Active Substance: RANITIDINE HYDROCHLORIDE
  10. XELODA [Suspect]
     Active Substance: CAPECITABINE
     Indication: BREAST CANCER FEMALE
     Dosage: AM
     Route: 048
     Dates: start: 20140613
  11. AMOXICILLIN. [Concomitant]
     Active Substance: AMOXICILLIN
  12. TESSALON [Concomitant]
     Active Substance: BENZONATATE
  13. XELODA [Suspect]
     Active Substance: CAPECITABINE
     Dosage: 1000 MG AM AND 1500 MG PM
     Route: 048
     Dates: start: 20140613
  14. CELEXA [Concomitant]
     Active Substance: CITALOPRAM HYDROBROMIDE
     Route: 065
  15. SOMA [Concomitant]
     Active Substance: CARISOPRODOL
  16. XELODA [Suspect]
     Active Substance: CAPECITABINE
     Dosage: PM
     Route: 048
     Dates: start: 20140613

REACTIONS (18)
  - Flatulence [Unknown]
  - Visual impairment [Unknown]
  - Mitral valve stenosis [Unknown]
  - Visual acuity reduced [Unknown]
  - Pain [Unknown]
  - Blood urine present [Unknown]
  - Eye pain [Unknown]
  - Pollakiuria [Not Recovered/Not Resolved]
  - Cough [Unknown]
  - Chapped lips [Unknown]
  - Stomatitis [Unknown]
  - Nausea [Unknown]
  - Headache [Unknown]
  - Dry skin [Unknown]
  - Alopecia [Unknown]
  - Pollakiuria [Unknown]
  - Palmar-plantar erythrodysaesthesia syndrome [Recovering/Resolving]
  - Nasopharyngitis [Unknown]
